FAERS Safety Report 16958460 (Version 2)
Quarter: 2019Q4

REPORT INFORMATION
  Report Type: Spontaneous
  Country: FR (occurrence: FR)
  Receive Date: 20191024
  Receipt Date: 20191029
  Transmission Date: 20200122
  Serious: Yes (Other)
  Sender: FDA-Public Use
  Company Number: FR-MYLANLABS-2019M1100665

PATIENT
  Age: 79 Year
  Sex: Female
  Weight: 78.5 kg

DRUGS (6)
  1. MIANSERINE ARROW [Suspect]
     Active Substance: MIANSERIN HYDROCHLORIDE
     Indication: DEPRESSION
     Dosage: 2 CP IN THE EVENING
     Route: 048
     Dates: start: 20190520, end: 20190525
  2. OXYNORMORO [Suspect]
     Active Substance: OXYCODONE HYDROCHLORIDE
     Indication: PAIN
     Dosage: IF NECESSARY
     Route: 048
     Dates: start: 20190518
  3. RAMIPRIL MYLAN 1,25 MG, COMPRIM? [Suspect]
     Active Substance: RAMIPRIL
     Indication: HYPERTENSION
     Dosage: 1 IN THE MORNING
     Route: 048
     Dates: start: 20190521
  4. PREGABALINE MYLAN [Concomitant]
     Active Substance: PREGABALIN
     Indication: PAIN
     Dosage: 1 CAPSULE MORNING AND EVENING
     Route: 048
     Dates: start: 20181115
  5. OXYCODONE MYLAN LP 10 MG, COMPRIM? PELLICUL? ? LIB?RATION PROLONG?E [Suspect]
     Active Substance: OXYCODONE
     Indication: PAIN
     Dosage: 1 CP MORNING AND EVENING
     Route: 048
     Dates: start: 20190522, end: 20190524
  6. FUROSEMIDE ARROW [Concomitant]
     Active Substance: FUROSEMIDE
     Indication: PRODUCT USED FOR UNKNOWN INDICATION
     Dosage: 1.5 CP MORNING AND NOON
     Route: 048
     Dates: start: 20181115

REACTIONS (1)
  - Bradycardia [Not Recovered/Not Resolved]

NARRATIVE: CASE EVENT DATE: 20190522
